FAERS Safety Report 8875739 (Version 1)
Quarter: 2012Q4

REPORT INFORMATION
  Report Type: 
  Country: MX (occurrence: MX)
  Receive Date: 20121030
  Receipt Date: 20121030
  Transmission Date: 20130627
  Serious: Yes (Hospitalization, Other)
  Sender: FDA-Public Use
  Company Number: PHHY2012MX097223

PATIENT
  Sex: Male

DRUGS (8)
  1. STALEVO [Suspect]
     Indication: PARKINSON^S DISEASE
     Dosage: 1 tablet (200/100/25 mg) per day
  2. STALEVO [Suspect]
     Dosage: 2 tablets (200/100/25 mg) per day
  3. STALEVO [Suspect]
     Dosage: 5 tablets (200/100/25 mg) per day
  4. STALEVO [Suspect]
     Dosage: 1 tablet (200/100/25 mg) each 12 hours
     Dates: start: 201204
  5. CARBAMAZEPINE [Concomitant]
     Indication: SLEEP DISORDER
     Dosage: 0.5 DF (1/2 tablet)
     Dates: start: 201202
  6. TAFIL [Concomitant]
     Indication: SLEEP DISORDER
     Dosage: 0.5 DF (1/2 tablet)
     Dates: start: 201204
  7. LYRICA [Concomitant]
     Indication: PAIN
     Dosage: 1 DF (1 tablet)
     Dates: start: 201204
  8. SOMAZINA [Concomitant]
     Indication: NERVOUS SYSTEM DISORDER
     Dosage: 1 DF (1 tablet per day)
     Dates: start: 201204

REACTIONS (2)
  - Hip fracture [Recovered/Resolved]
  - Fall [Recovered/Resolved]
